FAERS Safety Report 7617553-2 (Version None)
Quarter: 2011Q3

REPORT INFORMATION
  Report Type: 
  Country: None (occurrence: None)
  Receive Date: 20110718
  Receipt Date: 20110706
  Transmission Date: 20111222
  Serious: Yes (Other)
  Sender: FDA-Public Use
  Company Number: CA-JNJFOC-20110703411

PATIENT
  Sex: Male
  Weight: 88 kg

DRUGS (4)
  1. REMICADE [Suspect]
     Indication: CROHN'S DISEASE
     Route: 042
     Dates: start: 20100401
  2. BENADRYL [Concomitant]
     Indication: PREMEDICATION
     Route: 065
  3. HYDROCORTISONE [Concomitant]
     Indication: PREMEDICATION
     Route: 065
  4. TYLENOL-500 [Concomitant]
     Indication: PREMEDICATION
     Route: 065

REACTIONS (2)
  - LIMB OPERATION [None]
  - INFECTION [None]
